FAERS Safety Report 6979631-0 (Version None)
Quarter: 2010Q3

REPORT INFORMATION
  Report Type: 
  Country: None (occurrence: None)
  Receive Date: 20100910
  Receipt Date: 20100910
  Transmission Date: 20110219
  Serious: Yes (Hospitalization)
  Sender: FDA-Public Use
  Company Number: None

PATIENT
  Sex: Female
  Weight: 60.782 kg

DRUGS (2)
  1. AGGRENOX [Suspect]
     Indication: TRANSIENT ISCHAEMIC ATTACK
     Dosage: 1 2X/DAY PO
     Route: 048
     Dates: start: 20100315, end: 20100805
  2. AGGRENOX [Suspect]
     Indication: TRANSIENT ISCHAEMIC ATTACK
     Dosage: 1 2X/DAY PO
     Route: 048
     Dates: start: 20100315, end: 20100805

REACTIONS (5)
  - CHOLECYSTITIS [None]
  - DUODENAL ULCER [None]
  - GALLBLADDER ENLARGEMENT [None]
  - HAEMOGLOBIN DECREASED [None]
  - HAEMORRHAGE [None]
